FAERS Safety Report 10159526 (Version 3)
Quarter: 2014Q2

REPORT INFORMATION
  Report Type: Spontaneous
  Country: JP (occurrence: JP)
  Receive Date: 20140508
  Receipt Date: 20140603
  Transmission Date: 20141212
  Serious: Yes (Other)
  Sender: FDA-Public Use
  Company Number: JP-PFIZER INC-2014126220

PATIENT
  Age: 9 Decade
  Sex: Female

DRUGS (12)
  1. LIPITOR [Suspect]
     Dosage: UNK
     Route: 048
  2. ARICEPT [Suspect]
     Dosage: UNK
     Route: 048
  3. MYSLEE [Suspect]
     Indication: DEMENTIA
     Dosage: 10 MG, 1X/DAY
     Route: 048
  4. MICARDIS [Concomitant]
     Dosage: UNK
     Route: 048
  5. ADALAT [Concomitant]
     Dosage: UNK
     Route: 048
  6. TAKEPRON [Concomitant]
     Dosage: UNK
  7. SIGMART [Concomitant]
     Dosage: UNK
  8. LASIX [Concomitant]
     Dosage: UNK
  9. MAGMITT [Concomitant]
     Dosage: UNK
     Route: 048
  10. LOXOPROFEN [Concomitant]
     Dosage: UNK
  11. EDIROL [Concomitant]
     Dosage: UNK
  12. EVISTA [Concomitant]
     Dosage: UNK

REACTIONS (2)
  - Delusion [Unknown]
  - Restlessness [Recovered/Resolved]
